FAERS Safety Report 9034674 (Version 1)
Quarter: 2013Q1

REPORT INFORMATION
  Report Type: Spontaneous
  Country: US (occurrence: None)
  Receive Date: 20130111
  Receipt Date: 20130111
  Transmission Date: 20140127
  Serious: Yes (Other)
  Sender: FDA-Public Use
  Company Number: A1007265A

PATIENT
  Age: 29 Year
  Sex: Male

DRUGS (1)
  1. SODIUM FLUORIDE TOOTHPASTE (SODIUM FLUORIDE) [Suspect]
     Indication: DENTAL CLEANING
     Dosage: DENTAL
     Dates: start: 20130104, end: 20130104

REACTIONS (3)
  - Choking [None]
  - Dyspnoea [None]
  - Foreign body [None]
